FAERS Safety Report 5898730-8 (Version None)
Quarter: 2008Q3

REPORT INFORMATION
  Report Type: 
  Country: None (occurrence: None)
  Receive Date: 20080925
  Receipt Date: 20080505
  Transmission Date: 20090109
  Serious: No
  Sender: FDA-Public Use
  Company Number: A0727303A

PATIENT
  Sex: Female

DRUGS (1)
  1. WELLBUTRIN XL [Suspect]
     Indication: DEPRESSION
     Route: 048
     Dates: start: 20071001, end: 20080101

REACTIONS (3)
  - METABOLIC DISORDER [None]
  - PANIC ATTACK [None]
  - WEIGHT DECREASED [None]
